FAERS Safety Report 7979360-0 (Version None)
Quarter: 2011Q4

REPORT INFORMATION
  Report Type: 
  Country: None (occurrence: None)
  Receive Date: 20111214
  Receipt Date: 20111201
  Transmission Date: 20120403
  Serious: Yes (Other)
  Sender: FDA-Public Use
  Company Number: JP-NAPPMUNDI-MAG-2011-0001845

PATIENT
  Age: 70 Year
  Sex: Female

DRUGS (9)
  1. RIZE                               /00624801/ [Concomitant]
     Dosage: UNK
     Route: 048
     Dates: start: 20111021
  2. BUPRENORPHINE [Suspect]
     Dosage: 10 MCG, Q1H
     Dates: start: 20111102, end: 20111102
  3. BUPRENORPHINE [Suspect]
     Indication: BACK PAIN
     Dosage: 5 MCG, Q1H
     Route: 062
     Dates: start: 20111025, end: 20111101
  4. NEUROTROPIN                        /06251301/ [Concomitant]
     Dosage: 4 DF, DAILY
     Route: 048
     Dates: start: 20111021
  5. GOSHAKUSAN [Concomitant]
     Dosage: UNK
     Route: 048
     Dates: start: 20111031
  6. VOLTAREN [Concomitant]
     Indication: BACK PAIN
     Dosage: 25 MG, DAILY
     Route: 054
     Dates: start: 20111025
  7. KETOPROFEN [Concomitant]
     Dosage: UNK
     Route: 061
     Dates: start: 20111025
  8. LOXONIN [Suspect]
     Dosage: UNK
     Route: 061
     Dates: start: 20111025
  9. LUVOX [Concomitant]
     Indication: DEPRESSION
     Dosage: 50 MG, DAILY
     Route: 048
     Dates: start: 20111021

REACTIONS (2)
  - DELIRIUM [None]
  - ABNORMAL BEHAVIOUR [None]
